FAERS Safety Report 12167114 (Version 2)
Quarter: 2016Q2

REPORT INFORMATION
  Report Type: Spontaneous
  Country: BR (occurrence: BR)
  Receive Date: 20160310
  Receipt Date: 20160426
  Transmission Date: 20160815
  Serious: Yes (Hospitalization)
  Sender: FDA-Public Use
  Company Number: BR-AMGEN-BRASP2015081469

PATIENT
  Age: 83 Year
  Sex: Female
  Weight: 70 kg

DRUGS (8)
  1. ENBREL [Suspect]
     Active Substance: ETANERCEPT
     Indication: RHEUMATOID ARTHRITIS
     Dosage: 1 ML, UNK
     Route: 065
     Dates: start: 201506, end: 201507
  2. ENBREL [Suspect]
     Active Substance: ETANERCEPT
     Dosage: 1X/WEEK (STRENGTH 50 MG)
     Route: 065
  3. OSCAL                              /00514701/ [Concomitant]
     Indication: SCOLIOSIS
     Dosage: UNK
     Dates: start: 2014
  4. ENBREL [Suspect]
     Active Substance: ETANERCEPT
     Indication: PSORIASIS
     Dosage: 50 MG PER WEEK, IN THE BELLY
     Route: 065
     Dates: start: 20150512, end: 201506
  5. DORFLEX [Concomitant]
     Active Substance: CAFFEINE\DIPYRONE\ORPHENADRINE
     Indication: SPINAL PAIN
     Dosage: UNK
     Dates: start: 2015
  6. ARCOXIA [Concomitant]
     Active Substance: ETORICOXIB
     Dosage: UNK
     Dates: start: 201511
  7. ENBREL [Suspect]
     Active Substance: ETANERCEPT
     Dosage: 1X/WEEK (STRENGTH 50 MG)
     Route: 065
  8. OSCAL                              /00514701/ [Concomitant]
     Indication: SCOLIOSIS
     Dosage: UNK
     Dates: start: 2014

REACTIONS (6)
  - Nervous system disorder [Recovered/Resolved]
  - Swelling face [Recovering/Resolving]
  - Groin pain [Not Recovered/Not Resolved]
  - Gait disturbance [Not Recovered/Not Resolved]
  - Drug effect decreased [Unknown]
  - Swelling [Recovering/Resolving]

NARRATIVE: CASE EVENT DATE: 2015
